FAERS Safety Report 5709441-3 (Version None)
Quarter: 2008Q2

REPORT INFORMATION
  Report Type: 
  Country: None (occurrence: None)
  Receive Date: 20080418
  Receipt Date: 20080411
  Transmission Date: 20081010
  Serious: Yes (Hospitalization)
  Sender: FDA-Public Use
  Company Number: IT-BAYER-200812790GPV

PATIENT
  Age: 36 Year
  Sex: Male

DRUGS (1)
  1. ASPIRIN [Suspect]
     Indication: RHINITIS
     Dosage: TOTAL DAILY DOSE: 1000 MG
     Route: 048
     Dates: start: 20071201, end: 20071201

REACTIONS (3)
  - ABDOMINAL PAIN [None]
  - EROSIVE OESOPHAGITIS [None]
  - REFLUX OESOPHAGITIS [None]
